FAERS Safety Report 7127216-8 (Version None)
Quarter: 2010Q4

REPORT INFORMATION
  Report Type: 
  Country: None (occurrence: None)
  Receive Date: 20101129
  Receipt Date: 20100327
  Transmission Date: 20110411
  Serious: No
  Sender: FDA-Public Use
  Company Number: US-PFIZER INC-2010039509

PATIENT
  Age: 25 Year
  Sex: Male
  Weight: 88.435 kg

DRUGS (1)
  1. VIAGRA [Suspect]
     Indication: ERECTILE DYSFUNCTION
     Dosage: UNK
     Route: 048

REACTIONS (3)
  - PENILE PAIN [None]
  - PENILE SWELLING [None]
  - SKIN DISCOLOURATION [None]
